FAERS Safety Report 14392528 (Version 1)
Quarter: 2018Q1

REPORT INFORMATION
  Report Type: Spontaneous
  Country: CZ (occurrence: CZ)
  Receive Date: 20180116
  Receipt Date: 20180116
  Transmission Date: 20180509
  Serious: Yes (Life-Threatening, Hospitalization, Other)
  Sender: FDA-Public Use
  Company Number: CZ-B.I. PHARMACEUTICALS,INC./RIDGEFIELD-2018-12-000092

PATIENT
  Age: 51 Year
  Sex: Female

DRUGS (9)
  1. MELOXICAM. [Suspect]
     Active Substance: MELOXICAM
     Indication: ANALGESIC THERAPY
     Route: 065
  2. IVABRADINE [Concomitant]
     Active Substance: IVABRADINE
     Indication: SINUS TACHYCARDIA
     Route: 065
  3. TRAMADOL. [Interacting]
     Active Substance: TRAMADOL
     Indication: ANALGESIC THERAPY
     Route: 065
  4. BROMAZEPAM [Suspect]
     Active Substance: BROMAZEPAM
     Indication: PRODUCT USED FOR UNKNOWN INDICATION
     Route: 065
  5. PAROXETINE. [Interacting]
     Active Substance: PAROXETINE
     Indication: PRODUCT USED FOR UNKNOWN INDICATION
     Route: 065
  6. BUDESONIDE, FORMOTEROL [Concomitant]
     Indication: ASTHMA
     Dosage: 4.5/160 MG
     Route: 065
  7. INDOMETACIN [Interacting]
     Active Substance: INDOMETHACIN
     Indication: ANALGESIC THERAPY
     Route: 065
  8. TRAZODONE [Suspect]
     Active Substance: TRAZODONE HYDROCHLORIDE
     Indication: PRODUCT USED FOR UNKNOWN INDICATION
     Route: 065
  9. CHLORPROTHIXENE [Suspect]
     Active Substance: CHLORPROTHIXENE
     Indication: PRODUCT USED FOR UNKNOWN INDICATION
     Route: 065

REACTIONS (7)
  - Overdose [Not Recovered/Not Resolved]
  - Drug interaction [Unknown]
  - Bronchopulmonary aspergillosis [Unknown]
  - Candida pneumonia [Unknown]
  - Serotonin syndrome [Not Recovered/Not Resolved]
  - Brain oedema [Unknown]
  - Depressed level of consciousness [Unknown]
